FAERS Safety Report 12458598 (Version 1)
Quarter: 2016Q2

REPORT INFORMATION
  Report Type: Spontaneous
  Country: US (occurrence: None)
  Receive Date: 20160610
  Receipt Date: 20160610
  Transmission Date: 20160815
  Serious: Yes (Hospitalization, Other)
  Sender: FDA-Public Use
  Company Number: None

PATIENT
  Age: 66 Year
  Sex: Male
  Weight: 167.83 kg

DRUGS (3)
  1. INVOKANA [Suspect]
     Active Substance: CANAGLIFLOZIN
     Indication: GLYCOSYLATED HAEMOGLOBIN INCREASED
     Route: 048
     Dates: start: 20150612, end: 20151108
  2. NOVOLIN R [Concomitant]
     Active Substance: INSULIN HUMAN
  3. NOVOLIN N [Concomitant]
     Active Substance: INSULIN HUMAN

REACTIONS (5)
  - Pollakiuria [None]
  - Urinary tract infection [None]
  - Fall [None]
  - Lower limb fracture [None]
  - Impaired healing [None]

NARRATIVE: CASE EVENT DATE: 20151109
